FAERS Safety Report 9373573 (Version 5)
Quarter: 2014Q2

REPORT INFORMATION
  Report Type: Spontaneous
  Country: JP (occurrence: JP)
  Receive Date: 20130627
  Receipt Date: 20140415
  Transmission Date: 20141212
  Serious: Yes (Other)
  Sender: FDA-Public Use
  Company Number: JP-GILEAD-2013-0078077

PATIENT
  Age: 48 Year
  Sex: Female

DRUGS (12)
  1. AMBRISENTAN [Suspect]
     Indication: PULMONARY ARTERIAL HYPERTENSION
     Dosage: UNK
     Route: 048
     Dates: start: 201101, end: 201204
  2. AMBRISENTAN [Suspect]
     Dosage: UNK
     Dates: start: 201205, end: 201206
  3. BERAPROST SODIUM [Concomitant]
     Route: 048
  4. BERAPROST SODIUM [Concomitant]
     Route: 048
  5. BERAPROST SODIUM [Concomitant]
     Route: 048
  6. BERAPROST SODIUM [Concomitant]
     Route: 048
  7. SILDENAFIL CITRATE [Concomitant]
     Dosage: UNK
     Route: 048
     Dates: end: 201210
  8. SILDENAFIL CITRATE [Concomitant]
     Dosage: UNK
     Route: 048
     Dates: start: 2012, end: 201210
  9. EPOPROSTENOL [Concomitant]
     Dosage: 53 NG/KG/MIN
  10. EPOPROSTENOL [Concomitant]
     Dosage: UNK
     Route: 042
     Dates: start: 2008
  11. SPIRONOLACTONE [Concomitant]
     Dosage: UNK
     Route: 048
     Dates: end: 201303
  12. FUROSEMIDE [Concomitant]
     Dosage: UNK
     Route: 048
     Dates: end: 201303

REACTIONS (3)
  - Autoimmune hepatitis [Unknown]
  - Liver disorder [Unknown]
  - Thrombocytopenia [Recovered/Resolved]
